FAERS Safety Report 7946283-2 (Version None)
Quarter: 2011Q4

REPORT INFORMATION
  Report Type: 
  Country: None (occurrence: None)
  Receive Date: 20111123
  Receipt Date: 20111110
  Transmission Date: 20120403
  Serious: Yes (Hospitalization)
  Sender: FDA-Public Use
  Company Number: 1106547

PATIENT
  Age: 73 Year
  Sex: Male

DRUGS (3)
  1. CAPECITABINE [Suspect]
     Indication: RECTAL CANCER
     Dosage: 825 MG/M^2, TWICE DAILY
  2. OXALIPLATIN [Suspect]
     Indication: RECTAL CANCER
     Dosage: 60 MG/M^2, INTRAVENOUS (NOT OTHERWISE SPECIFIED)
     Route: 042
  3. (THERAPEUTIC RADIOPHARMACEUTICALS) [Suspect]
     Indication: RECTAL CANCER

REACTIONS (7)
  - ABDOMINAL SEPSIS [None]
  - DIARRHOEA [None]
  - ABDOMINAL PAIN [None]
  - HYPOTENSION [None]
  - LEUKOPENIA [None]
  - TACHYCARDIA [None]
  - HYPERPYREXIA [None]
